FAERS Safety Report 7590657-9 (Version None)
Quarter: 2011Q3

REPORT INFORMATION
  Report Type: 
  Country: None (occurrence: None)
  Receive Date: 20110705
  Receipt Date: 20110331
  Transmission Date: 20111222
  Serious: Yes (Life-Threatening, Hospitalization)
  Sender: FDA-Public Use
  Company Number: IE-CELGENEUS-229-21880-11031488

PATIENT
  Sex: Male
  Weight: 73 kg

DRUGS (9)
  1. SPIRONOLACTONE [Concomitant]
     Indication: HYPERTENSION
     Dosage: 50 MILLIGRAM
     Route: 065
  2. WARFARIN SODIUM [Concomitant]
     Indication: ATRIAL FIBRILLATION
     Route: 065
  3. VERPAMIL HCL [Suspect]
     Indication: ATRIAL FIBRILLATION
     Dosage: 240 MILLIGRAM
     Route: 065
     Dates: end: 20110305
  4. FILGRASTIM [Concomitant]
     Indication: LEUKOPENIA
     Route: 065
     Dates: start: 20110215, end: 20110322
  5. TOLTERODINE TARTRATE [Suspect]
     Indication: URINARY INCONTINENCE
     Dosage: 8 MILLIGRAM
     Route: 065
     Dates: end: 20110305
  6. PERINDOPRIL [Concomitant]
     Indication: HYPERTENSION
     Dosage: 2.5 MILLIGRAM
     Route: 065
  7. REVLIMID [Suspect]
     Dosage: 10 MILLIGRAM
     Route: 048
     Dates: start: 20110201, end: 20110305
  8. ATORVASTATIN [Concomitant]
     Indication: HYPERCHOLESTEROLAEMIA
     Dosage: 10 MILLIGRAM
     Route: 065
  9. PANTOPRAZOLE [Concomitant]
     Dosage: 20-40MG PER DAY
     Route: 065

REACTIONS (4)
  - BRADYCARDIA [None]
  - CARDIAC ARREST [None]
  - CIRCULATORY COLLAPSE [None]
  - DYSPNOEA [None]
